FAERS Safety Report 5332678-2 (Version None)
Quarter: 2007Q2

REPORT INFORMATION
  Report Type: 
  Country: None (occurrence: None)
  Receive Date: 20070523
  Receipt Date: 20070511
  Transmission Date: 20071010
  Serious: Yes (Other)
  Sender: FDA-Public Use
  Company Number: BE-PFIZER INC-2007019775

PATIENT
  Sex: Male

DRUGS (2)
  1. CHAMPIX [Suspect]
     Indication: EX-SMOKER
     Route: 048
     Dates: start: 20070108, end: 20070204
  2. SALAZOPYRINE [Interacting]
     Route: 048
     Dates: start: 20070128, end: 20070211

REACTIONS (6)
  - ABDOMINAL PAIN [None]
  - ANOREXIA [None]
  - DIARRHOEA [None]
  - DRUG INTERACTION [None]
  - PANCREATITIS [None]
  - WEIGHT DECREASED [None]
